FAERS Safety Report 8684158 (Version 4)
Quarter: 2014Q1

REPORT INFORMATION
  Report Type: Spontaneous
  Country: US (occurrence: US)
  Receive Date: 20120726
  Receipt Date: 20140129
  Transmission Date: 20141002
  Serious: Yes (Hospitalization, Other)
  Sender: FDA-Public Use
  Company Number: US-009507513-1207USA006524

PATIENT
  Sex: Female
  Weight: 53.52 kg

DRUGS (13)
  1. FOSAMAX [Suspect]
     Indication: OSTEOPENIA
     Dosage: 70 MG, QW
     Route: 048
     Dates: start: 2002, end: 200802
  2. FOSAMAX [Suspect]
     Indication: PROPHYLAXIS
  3. ALENDRONATE SODIUM [Suspect]
     Indication: OSTEOPOROSIS
     Dosage: 70 MG, QW
     Route: 048
     Dates: start: 200802, end: 201002
  4. ALENDRONATE SODIUM [Suspect]
     Indication: OSTEOPENIA
  5. VITAMINS (UNSPECIFIED) [Concomitant]
     Dosage: QD
     Dates: start: 2000
  6. FOLIC ACID [Concomitant]
     Dosage: 800 MG, QD
     Dates: start: 2000
  7. ASCORBIC ACID [Concomitant]
     Dosage: 500 MG, QD
     Dates: start: 2000
  8. CALCIUM (UNSPECIFIED) [Concomitant]
     Dosage: 1200 MG, BID
     Dates: start: 2000
  9. MAGNESIUM (UNSPECIFIED) [Concomitant]
     Dosage: 400 MG, BID
     Dates: start: 2000
  10. ASCOMP [Concomitant]
     Indication: BACK PAIN
     Dosage: UNK
     Dates: start: 1990
  11. COUMADIN [Concomitant]
     Indication: PROTEIN S DEFICIENCY
     Dosage: UNK
     Dates: start: 1998
  12. COUMADIN [Concomitant]
     Indication: DEEP VEIN THROMBOSIS
  13. COUMADIN [Concomitant]
     Indication: PROTEIN C DEFICIENCY

REACTIONS (29)
  - Intramedullary rod insertion [Unknown]
  - Spinal fusion surgery [Unknown]
  - Closed fracture manipulation [Unknown]
  - Peripheral nerve operation [Unknown]
  - Bone debridement [Unknown]
  - Colectomy [Unknown]
  - Large intestinal obstruction [Unknown]
  - Femur fracture [Unknown]
  - Fall [Unknown]
  - Large intestinal obstruction [Unknown]
  - Wrist fracture [Unknown]
  - Wrist surgery [Unknown]
  - Radius fracture [Unknown]
  - Anxiety [Unknown]
  - Endodontic procedure [Unknown]
  - Muscle strain [Unknown]
  - Depression [Unknown]
  - Pain [Unknown]
  - Rheumatoid arthritis [Unknown]
  - Anxiety [Unknown]
  - Pelvic pain [Unknown]
  - Arthritis [Unknown]
  - Ligament operation [Unknown]
  - Joint injury [Unknown]
  - Haematoma evacuation [Unknown]
  - Haematoma [Unknown]
  - Nerve injury [Unknown]
  - Cardiac disorder [Unknown]
  - Extraskeletal ossification [Unknown]
